FAERS Safety Report 15020109 (Version 2)
Quarter: 2018Q2

REPORT INFORMATION
  Report Type: Spontaneous
  Country: SE (occurrence: SE)
  Receive Date: 20180618
  Receipt Date: 20180621
  Transmission Date: 20180711
  Serious: Yes (Death, Other)
  Sender: FDA-Public Use
  Company Number: SE-TEVA-2018-SE-909916

PATIENT
  Age: 47 Year
  Sex: Male

DRUGS (7)
  1. QUETIAPINE. [Concomitant]
     Active Substance: QUETIAPINE
     Route: 065
  2. PREGABALIN. [Concomitant]
     Active Substance: PREGABALIN
     Route: 065
  3. XANOR [Concomitant]
     Active Substance: ALPRAZOLAM
     Route: 065
  4. FLUOXETINE [Suspect]
     Active Substance: FLUOXETINE HYDROCHLORIDE
     Dosage: 60 MILLIGRAM DAILY;
     Route: 048
  5. STESOLID [Concomitant]
     Active Substance: DIAZEPAM
     Route: 065
  6. PROPAVAN [Concomitant]
     Active Substance: PROPIOMAZINE
     Route: 065
  7. ZOLPIDEM [Concomitant]
     Active Substance: ZOLPIDEM\ZOLPIDEM TARTRATE

REACTIONS (2)
  - Sudden death [Fatal]
  - Drug level increased [Fatal]

NARRATIVE: CASE EVENT DATE: 2018
